FAERS Safety Report 16270293 (Version 1)
Quarter: 2019Q2

REPORT INFORMATION
  Report Type: Spontaneous
  Country: US (occurrence: US)
  Receive Date: 20190329
  Receipt Date: 20190329
  Transmission Date: 20190711
  Serious: No
  Sender: FDA-Public Use
  Company Number: None

PATIENT
  Sex: Female

DRUGS (1)
  1. CEFAZOLIN SODIUM 1 GM APOTEX [Suspect]
     Active Substance: CEFAZOLIN SODIUM
     Indication: OSTEOMYELITIS
     Route: 042
     Dates: start: 20190320, end: 20190325

REACTIONS (6)
  - Flushing [None]
  - Pain [None]
  - Palpitations [None]
  - Middle insomnia [None]
  - Dyspnoea [None]
  - Feeling hot [None]
